FAERS Safety Report 4390981-7 (Version None)
Quarter: 2004Q3

REPORT INFORMATION
  Report Type: 
  Country: None (occurrence: None)
  Receive Date: 20040701
  Receipt Date: 20040701
  Transmission Date: 20050211
  Serious: No
  Sender: FDA-Public Use
  Company Number: None

PATIENT

DRUGS (1)
  1. MORPHINE SULFATE [Suspect]

REACTIONS (3)
  - EXTRAVASATION [None]
  - MEDICAL DEVICE COMPLICATION [None]
  - SEDATION [None]
